FAERS Safety Report 18295979 (Version 1)
Quarter: 2020Q3

REPORT INFORMATION
  Report Type: Report from Study
  Country: US (occurrence: US)
  Receive Date: 20200922
  Receipt Date: 20200922
  Transmission Date: 20201103
  Serious: Yes (Hospitalization)
  Sender: FDA-Public Use
  Company Number: NVSC2020US255246

PATIENT

DRUGS (1)
  1. ENTRESTO [Suspect]
     Active Substance: SACUBITRIL\VALSARTAN
     Indication: DEMENTIA
     Dosage: UNK UNK, BID
     Route: 048

REACTIONS (2)
  - Dementia Alzheimer^s type [Unknown]
  - Product use in unapproved indication [Unknown]
